FAERS Safety Report 8779887 (Version 1)
Quarter: 2012Q4

REPORT INFORMATION
  Report Type: Spontaneous
  Country: US (occurrence: None)
  Receive Date: 20120905
  Receipt Date: 20120905
  Transmission Date: 20130627
  Serious: Yes (Other)
  Sender: FDA-Public Use
  Company Number: None

PATIENT
  Age: 45 Year
  Sex: Female
  Weight: 71.67 kg

DRUGS (2)
  1. CYMBALTA 30 MG ELI LILLY [Suspect]
     Indication: MUSCLE PAIN
     Route: 048
     Dates: start: 20120902, end: 20120902
  2. CYMBALTA 30 MG ELI LILLY [Suspect]
     Indication: RHEUMATOID ARTHRITIS
     Route: 048
     Dates: start: 20120902, end: 20120902

REACTIONS (3)
  - Yawning [None]
  - Chills [None]
  - Pain in jaw [None]
